FAERS Safety Report 10094449 (Version 1)
Quarter: 2014Q2

REPORT INFORMATION
  Report Type: Spontaneous
  Country: EG (occurrence: EG)
  Receive Date: 20140422
  Receipt Date: 20140422
  Transmission Date: 20141212
  Serious: Yes (Death, Life-Threatening, Hospitalization, Other)
  Sender: FDA-Public Use
  Company Number: EG-JNJFOC-20140412368

PATIENT
  Sex: 0

DRUGS (2)
  1. DOXORUBICIN HYDROCHLORIDE [Suspect]
     Indication: ACUTE MYELOID LEUKAEMIA
     Dosage: DAY 1-DAY 2 (2 TO 14 REGIMEN); ARM 2
     Route: 042
  2. CYTARABINE [Suspect]
     Indication: ACUTE MYELOID LEUKAEMIA
     Dosage: DAY 1 TO DAY 14; ARM 2
     Route: 058

REACTIONS (3)
  - Toxicity to various agents [Fatal]
  - Neutropenia [Unknown]
  - Off label use [Unknown]
